FAERS Safety Report 19681226 (Version 1)
Quarter: 2021Q3

REPORT INFORMATION
  Report Type: Spontaneous
  Country: US (occurrence: US)
  Receive Date: 20210810
  Receipt Date: 20210810
  Transmission Date: 20211014
  Serious: No
  Sender: FDA-Public Use
  Company Number: US-IGSA-SR10010485

PATIENT
  Sex: Female

DRUGS (1)
  1. GAMUNEX?C [Suspect]
     Active Substance: HUMAN IMMUNOGLOBULIN G
     Indication: WALDENSTROM^S MACROGLOBULINAEMIA
     Dosage: UNK UNK, Q.M.T.
     Route: 042
     Dates: start: 20200101

REACTIONS (2)
  - Liquid product physical issue [Not Recovered/Not Resolved]
  - Fatigue [Not Recovered/Not Resolved]
